FAERS Safety Report 8200640-8 (Version None)
Quarter: 2012Q1

REPORT INFORMATION
  Report Type: 
  Country: None (occurrence: None)
  Receive Date: 20120312
  Receipt Date: 20120227
  Transmission Date: 20120608
  Serious: Yes (Hospitalization)
  Sender: FDA-Public Use
  Company Number: JP-UCBSA-050529

PATIENT
  Age: 28 Year
  Sex: Female
  Weight: 33.9 kg

DRUGS (9)
  1. KEPPRA [Suspect]
     Route: 048
     Dates: start: 20111001, end: 20111116
  2. PHENOBARBITAL TAB [Suspect]
     Dosage: DAILY DOSE: 5 MG
     Route: 048
     Dates: start: 20110728, end: 20110816
  3. PHENYTOIN SODIUM CAP [Suspect]
     Dosage: DAILY DOSE: 100 MG
     Route: 048
     Dates: start: 20110613, end: 20110619
  4. KEPPRA [Suspect]
     Route: 048
     Dates: start: 20110513, end: 20110913
  5. LAMICTAL [Suspect]
     Dosage: DAILY DOSE: 150 MG
     Route: 048
     Dates: start: 20110506, end: 20111116
  6. PHENYTOIN SODIUM CAP [Suspect]
     Dosage: DAILY DOSE: 200 MG
     Route: 048
     Dates: start: 20110530, end: 20110613
  7. PHENOBARBITAL TAB [Suspect]
     Dosage: DAILY DOSE: 30 MG
     Route: 048
     Dates: end: 20110727
  8. KEPPRA [Suspect]
     Indication: EPILEPSY
     Route: 048
     Dates: start: 20111001, end: 20111001
  9. KEPPRA [Suspect]
     Route: 048
     Dates: start: 20110916, end: 20110920

REACTIONS (3)
  - ILEUS PARALYTIC [None]
  - COGNITIVE DISORDER [None]
  - ALTERED STATE OF CONSCIOUSNESS [None]
